FAERS Safety Report 10470625 (Version 2)
Quarter: 2015Q1

REPORT INFORMATION
  Report Type: Spontaneous
  Country: US (occurrence: US)
  Receive Date: 20140923
  Receipt Date: 20150224
  Transmission Date: 20150720
  Serious: Yes (Hospitalization, Other)
  Sender: FDA-Public Use
  Company Number: US-009507513-1409USA010702

PATIENT
  Sex: Male

DRUGS (2)
  1. JANUVIA [Suspect]
     Active Substance: SITAGLIPTIN PHOSPHATE
     Indication: TYPE 2 DIABETES MELLITUS
     Dosage: 50 MG, QD
     Route: 048
     Dates: start: 20090429, end: 20091116
  2. JANUVIA [Suspect]
     Active Substance: SITAGLIPTIN PHOSPHATE
     Dosage: 100 MG, QD
     Route: 048
     Dates: start: 20091117, end: 2012

REACTIONS (6)
  - Pancreatic carcinoma [Unknown]
  - Carcinoid tumour of the gastrointestinal tract [Unknown]
  - Small intestine operation [Unknown]
  - Neuropathy peripheral [Unknown]
  - Adverse drug reaction [Unknown]
  - Cellulitis [Unknown]

NARRATIVE: CASE EVENT DATE: 20110218
